FAERS Safety Report 5219626-0 (Version None)
Quarter: 2007Q1

REPORT INFORMATION
  Report Type: 
  Country: None (occurrence: None)
  Receive Date: 20070125
  Receipt Date: 20070116
  Transmission Date: 20070707
  Serious: Yes (Other)
  Sender: FDA-Public Use
  Company Number: FR-PFIZER INC-2003037639

PATIENT
  Sex: Female
  Weight: 68 kg

DRUGS (6)
  1. ATORVASTATIN CALCIUM [Suspect]
     Indication: DYSLIPIDAEMIA
     Dosage: DAILY DOSE:40MG
     Route: 048
  2. FAODILE [Concomitant]
     Route: 048
  3. HYDROXYZINE [Concomitant]
     Route: 048
  4. BROMAZEPAM [Concomitant]
     Route: 048
  5. HYDROCORTISONE [Concomitant]
     Route: 048
  6. FENTANYL TRANSDERMAL SYSTEM [Concomitant]
     Route: 048

REACTIONS (4)
  - ERYTHEMA [None]
  - LIPIDS ABNORMAL [None]
  - MYCOSIS FUNGOIDES [None]
  - PHOTOSENSITIVITY REACTION [None]
